FAERS Safety Report 11378811 (Version 1)
Quarter: 2015Q3

REPORT INFORMATION
  Report Type: Spontaneous
  Country: US (occurrence: US)
  Receive Date: 20150811
  Receipt Date: 20150811
  Transmission Date: 20151125
  Serious: No
  Sender: FDA-Public Use
  Company Number: US-ELI_LILLY_AND_COMPANY-US200907004364

PATIENT
  Sex: Female

DRUGS (3)
  1. ACTOS [Concomitant]
     Active Substance: PIOGLITAZONE HYDROCHLORIDE
  2. HUMULIN N [Suspect]
     Active Substance: INSULIN HUMAN
     Dosage: UNK, UNK
  3. HUMULIN R [Suspect]
     Active Substance: INSULIN HUMAN
     Dosage: 25 U, UNK

REACTIONS (5)
  - Drug dispensing error [Recovered/Resolved]
  - Intentional product misuse [Recovered/Resolved]
  - Expired product administered [Recovered/Resolved]
  - Anxiety [Recovered/Resolved]
  - Wrong drug administered [Recovered/Resolved]

NARRATIVE: CASE EVENT DATE: 200807
